FAERS Safety Report 26092025 (Version 1)
Quarter: 2025Q4

REPORT INFORMATION
  Report Type: Spontaneous
  Country: US (occurrence: US)
  Receive Date: 20251126
  Receipt Date: 20251126
  Transmission Date: 20260117
  Serious: Yes (Other)
  Sender: COOPERSURGICAL
  Company Number: US-COOPERSURGICAL, INC.-2024CPS003360

PATIENT
  Sex: Female
  Weight: 48.073 kg

DRUGS (1)
  1. PARAGARD T 380A [Suspect]
     Active Substance: COPPER
     Indication: Contraception
     Dosage: UNK
     Route: 015
     Dates: start: 20201123, end: 20201223

REACTIONS (10)
  - Laparoscopy [Recovered/Resolved]
  - Complication of device removal [Recovered/Resolved]
  - Off label use [Unknown]
  - Uterine perforation [Unknown]
  - Emotional distress [Unknown]
  - Procedural pain [Recovered/Resolved]
  - Complication of device insertion [Recovered/Resolved]
  - Complication associated with device [Recovered/Resolved]
  - Pelvic pain [Unknown]
  - Device dislocation [Recovered/Resolved]

NARRATIVE: CASE EVENT DATE: 20200101
